FAERS Safety Report 9173698 (Version 2)
Quarter: 2013Q2

REPORT INFORMATION
  Report Type: Report from Study
  Country: DE (occurrence: DE)
  Receive Date: 20130320
  Receipt Date: 20130531
  Transmission Date: 20140414
  Serious: Yes (Hospitalization)
  Sender: FDA-Public Use
  Company Number: DE-ASTELLAS-2013US003001

PATIENT
  Age: 77 Year
  Sex: Male
  Weight: 69 kg

DRUGS (1)
  1. ERLOTINIB TABLET [Suspect]
     Indication: NON-SMALL CELL LUNG CANCER METASTATIC
     Dosage: 150 MG, UID/QD
     Route: 048
     Dates: start: 20130214

REACTIONS (5)
  - Pneumonia [Recovered/Resolved]
  - Pulmonary embolism [Recovered/Resolved]
  - Acute respiratory failure [Recovered/Resolved]
  - Anaemia [Recovered/Resolved]
  - Deep vein thrombosis [Recovered/Resolved]
